FAERS Safety Report 25591607 (Version 2)
Quarter: 2025Q3

REPORT INFORMATION
  Report Type: Spontaneous
  Country: EU (occurrence: EU)
  Receive Date: 20250722
  Receipt Date: 20250924
  Transmission Date: 20251021
  Serious: Yes (Other)
  Sender: TEVA
  Company Number: EU-TEVA-VS-3352282

PATIENT
  Age: 41 Year
  Sex: Female

DRUGS (1)
  1. LISDEXAMFETAMINE [Suspect]
     Active Substance: LISDEXAMFETAMINE
     Indication: Product used for unknown indication
     Dosage: LISDEXAMFETAMIN-RATIOPHARM, 30 MG HARTKAPSELN, DOSAGE: ONE IN THE MORNING
     Route: 065
     Dates: start: 20250630, end: 20250710

REACTIONS (9)
  - Cardiovascular disorder [Recovered/Resolved]
  - Dyspepsia [Recovered/Resolved]
  - Product odour abnormal [Unknown]
  - Feeling abnormal [Unknown]
  - Malaise [Recovered/Resolved]
  - Abdominal discomfort [Recovered/Resolved]
  - Nausea [Recovered/Resolved]
  - Coordination abnormal [Recovered/Resolved]
  - Dizziness [Recovered/Resolved]

NARRATIVE: CASE EVENT DATE: 20250101
